FAERS Safety Report 7649320-8 (Version None)
Quarter: 2011Q3

REPORT INFORMATION
  Report Type: 
  Country: None (occurrence: None)
  Receive Date: 20110726
  Receipt Date: 20110715
  Transmission Date: 20111222
  Serious: Yes (Disabling, Other)
  Sender: FDA-Public Use
  Company Number: ACO_25835_2011

PATIENT
  Age: 67 Year
  Sex: Female
  Weight: 59 kg

DRUGS (2)
  1. AMPYRA [Suspect]
     Indication: GAIT DISTURBANCE
     Dosage: 10 MG, BID, ORAL
     Route: 048
     Dates: start: 20101101, end: 20110101
  2. COPAXONE [Concomitant]

REACTIONS (4)
  - MOBILITY DECREASED [None]
  - HEADACHE [None]
  - ABASIA [None]
  - MUSCULOSKELETAL STIFFNESS [None]
